FAERS Safety Report 7096406-5 (Version None)
Quarter: 2010Q4

REPORT INFORMATION
  Report Type: 
  Country: None (occurrence: None)
  Receive Date: 20101111
  Receipt Date: 20101104
  Transmission Date: 20110411
  Serious: Yes (Hospitalization, Disabling)
  Sender: FDA-Public Use
  Company Number: SE-BAYER-200716917GDS

PATIENT
  Age: 75 Year
  Sex: Male
  Weight: 82 kg

DRUGS (4)
  1. SORAFENIB [Suspect]
     Indication: RENAL CELL CARCINOMA
     Route: 048
     Dates: start: 20071109
  2. SORAFENIB [Suspect]
     Route: 048
     Dates: start: 20071116
  3. WARAN [Concomitant]
     Route: 065
  4. INNOHEP [Concomitant]
     Route: 065

REACTIONS (14)
  - ABDOMINAL PAIN [None]
  - COUGH [None]
  - DYSPNOEA [None]
  - FATIGUE [None]
  - GENERAL PHYSICAL HEALTH DETERIORATION [None]
  - HAEMORRHAGE [None]
  - IMPAIRED WORK ABILITY [None]
  - INFECTED NEOPLASM [None]
  - INTERNATIONAL NORMALISED RATIO INCREASED [None]
  - METASTASES TO LIVER [None]
  - METASTATIC RENAL CELL CARCINOMA [None]
  - STOMATITIS [None]
  - TUMOUR HAEMORRHAGE [None]
  - TUMOUR NECROSIS [None]
